FAERS Safety Report 8418810-2 (Version None)
Quarter: 2012Q2

REPORT INFORMATION
  Report Type: 
  Country: None (occurrence: None)
  Receive Date: 20120607
  Receipt Date: 20120607
  Transmission Date: 20120825
  Serious: Yes (Death)
  Sender: FDA-Public Use
  Company Number: US-PFIZER INC-2009US-21142

PATIENT
  Age: 57 Year
  Sex: Male

DRUGS (8)
  1. GLIPIZIDE [Suspect]
     Dosage: UNK
     Route: 048
  2. VERAPAMIL HCL [Suspect]
     Dosage: UNK
     Route: 048
  3. CLONIDINE [Suspect]
     Dosage: UNK
     Route: 048
  4. LITHIUM [Suspect]
     Dosage: UNK
     Route: 048
  5. QUETIAPINE [Suspect]
     Dosage: UNK
     Route: 048
  6. MODAFINIL [Suspect]
     Dosage: UNK
     Route: 048
  7. PAROXETINE [Suspect]
     Dosage: UNK
     Route: 048
  8. PROPRANOLOL [Suspect]
     Dosage: UNK
     Route: 048

REACTIONS (1)
  - DEATH [None]
